FAERS Safety Report 7986381-0 (Version None)
Quarter: 2011Q4

REPORT INFORMATION
  Report Type: 
  Country: None (occurrence: None)
  Receive Date: 20111216
  Receipt Date: 20110408
  Transmission Date: 20120403
  Serious: No
  Sender: FDA-Public Use
  Company Number: US-GLAXOSMITHKLINE-A0922103A

PATIENT
  Age: 61 Year
  Sex: Male

DRUGS (10)
  1. VITAMIN E [Concomitant]
  2. HYDROCHLOROTHIAZIDE [Concomitant]
  3. AMLODIPINE [Concomitant]
  4. COREG CR [Suspect]
     Indication: CARDIAC DISORDER
     Dosage: 20MG PER DAY
     Route: 048
     Dates: start: 20110403, end: 20110406
  5. SUPER B COMPLEX [Concomitant]
  6. ASPIRIN [Concomitant]
  7. CAPTOPRIL [Concomitant]
  8. VITAMIN C [Concomitant]
  9. COQ-10 [Concomitant]
  10. MAGNESIUM [Concomitant]

REACTIONS (7)
  - RASH [None]
  - BURNING SENSATION [None]
  - OEDEMA PERIPHERAL [None]
  - PRURITUS [None]
  - RASH MACULAR [None]
  - SKIN TIGHTNESS [None]
  - ERYTHEMA [None]
